FAERS Safety Report 10219400 (Version 1)
Quarter: 2014Q2

REPORT INFORMATION
  Report Type: Spontaneous
  Country: US (occurrence: US)
  Receive Date: 20140605
  Receipt Date: 20140605
  Transmission Date: 20141212
  Serious: Yes (Other)
  Sender: FDA-Public Use
  Company Number: CHPA2014US007494

PATIENT
  Age: 47 Year
  Sex: Female

DRUGS (6)
  1. VOLTAREN GEL [Suspect]
     Indication: ARTHRITIS
     Dosage: MAYBE LIKE A HALF INCH, UNK
     Route: 061
  2. ULTRAM//TRAMADOL HYDROCHLORIDE [Concomitant]
     Indication: PAIN
     Dosage: UNK
  3. NORCO [Concomitant]
     Indication: PAIN
     Dosage: UNK
  4. ATIVAN [Concomitant]
     Indication: PAIN
     Dosage: UNK
  5. LIDODERM [Concomitant]
     Indication: PAIN
     Dosage: UNK
  6. MARIJUANA [Concomitant]
     Indication: PAIN
     Dosage: UNK
     Dates: start: 2010

REACTIONS (5)
  - Nephrolithiasis [Recovered/Resolved]
  - Hepatic cyst [Unknown]
  - Urinary incontinence [Not Recovered/Not Resolved]
  - Drug administered at inappropriate site [Unknown]
  - Wrong technique in drug usage process [Unknown]
